FAERS Safety Report 19447695 (Version 1)
Quarter: 2021Q2

REPORT INFORMATION
  Report Type: Spontaneous
  Country: US (occurrence: US)
  Receive Date: 20210622
  Receipt Date: 20210622
  Transmission Date: 20210717
  Serious: No
  Sender: FDA-Public Use
  Company Number: US-THERAPEUTICSMD-2021TMD01515

PATIENT
  Age: 51 Year
  Sex: Female
  Weight: 83.01 kg

DRUGS (5)
  1. ESTROGEN AND PROGESTERONE [Concomitant]
     Dosage: UNK, 1X/DAY
     Route: 048
  2. IMVEXXY [Suspect]
     Active Substance: ESTRADIOL
     Indication: ATROPHIC VULVOVAGINITIS
     Dosage: 10 ?G, 2X/WEEK
     Route: 067
  3. HYDROCHLOROTHIAZIDE. [Concomitant]
     Active Substance: HYDROCHLOROTHIAZIDE
     Dosage: UNK, 2X/DAY
  4. IMVEXXY [Suspect]
     Active Substance: ESTRADIOL
     Dosage: 10 ?G, ^IRREGULARLY^
     Route: 067
  5. LEVOTHYROXINE. [Concomitant]
     Active Substance: LEVOTHYROXINE
     Dosage: UNK, 1X/DAY

REACTIONS (4)
  - Product use complaint [Not Recovered/Not Resolved]
  - Intentional dose omission [Not Recovered/Not Resolved]
  - Incorrect route of product administration [Recovered/Resolved]
  - Vaginal discharge [Not Recovered/Not Resolved]

NARRATIVE: CASE EVENT DATE: 20210413
